FAERS Safety Report 6375496-9 (Version None)
Quarter: 2009Q3

REPORT INFORMATION
  Report Type: 
  Country: None (occurrence: None)
  Receive Date: 20090924
  Receipt Date: 20090914
  Transmission Date: 20100115
  Serious: Yes (Hospitalization)
  Sender: FDA-Public Use
  Company Number: US-ABBOTT-09P-163-0592227-00

PATIENT
  Age: 59 Year
  Sex: Female

DRUGS (3)
  1. DEPAKOTE ER [Suspect]
     Indication: BIPOLAR DISORDER
     Dates: end: 20081001
  2. DEPAKOTE ER [Suspect]
     Dates: start: 20090101
  3. ZYPREXA [Concomitant]
     Indication: BIPOLAR DISORDER

REACTIONS (5)
  - AGITATION [None]
  - MANIA [None]
  - PSYCHOTIC DISORDER [None]
  - TREMOR [None]
  - UNEVALUABLE EVENT [None]
